FAERS Safety Report 7239107-2 (Version None)
Quarter: 2011Q1

REPORT INFORMATION
  Report Type: 
  Country: None (occurrence: None)
  Receive Date: 20110121
  Receipt Date: 20101014
  Transmission Date: 20110831
  Serious: No
  Sender: FDA-Public Use
  Company Number: US-BAYER-201022567BCC

PATIENT
  Sex: Female
  Weight: 73.636 kg

DRUGS (2)
  1. ALEVE [Suspect]
     Indication: MUSCULOSKELETAL PAIN
     Dosage: 440 MG, BID
     Route: 048
     Dates: start: 20100101, end: 20101013
  2. AVALIDE [Concomitant]

REACTIONS (1)
  - ABDOMINAL PAIN UPPER [None]
